FAERS Safety Report 7893381-8 (Version None)
Quarter: 2011Q4

REPORT INFORMATION
  Report Type: 
  Country: None (occurrence: None)
  Receive Date: 20111104
  Receipt Date: 20111024
  Transmission Date: 20120403
  Serious: Yes (Other)
  Sender: FDA-Public Use
  Company Number: CH-ROCHE-1008734

PATIENT
  Age: 5 Year
  Sex: Male

DRUGS (3)
  1. ACETAMINOPHEN [Concomitant]
     Route: 054
  2. VALIUM [Suspect]
     Indication: CONVULSION
     Route: 054
  3. VALIUM [Suspect]
     Route: 054

REACTIONS (3)
  - RESPIRATORY ACIDOSIS [None]
  - HYPOVENTILATION [None]
  - RESPIRATORY ARREST [None]
